FAERS Safety Report 4975299-3 (Version None)
Quarter: 2006Q2

REPORT INFORMATION
  Report Type: 
  Country: None (occurrence: None)
  Receive Date: 20060418
  Receipt Date: 20051114
  Transmission Date: 20061013
  Serious: Yes (Hospitalization, Disabling, Other)
  Sender: FDA-Public Use
  Company Number: US-MERCK-0511USA02273

PATIENT
  Age: 69 Year
  Sex: Female
  Weight: 70 kg

DRUGS (6)
  1. VIOXX [Suspect]
     Indication: INTERVERTEBRAL DISC DEGENERATION
     Route: 048
     Dates: start: 20000201, end: 20030701
  2. VIOXX [Suspect]
     Indication: ARTHRITIS
     Route: 048
     Dates: start: 20000201, end: 20030701
  3. FLEXERIL [Concomitant]
     Route: 065
  4. AMITRIPTYLINE HYDROCHLORIDE [Concomitant]
     Route: 065
  5. ULTRAM [Concomitant]
     Route: 065
  6. TRAZODONE HYDROCHLORIDE [Concomitant]
     Route: 065

REACTIONS (13)
  - ANGINA PECTORIS [None]
  - ANGINA UNSTABLE [None]
  - ARTERIAL RESTENOSIS [None]
  - CORONARY ARTERY DISEASE [None]
  - CORONARY ARTERY OCCLUSION [None]
  - CORONARY ARTERY STENOSIS [None]
  - ESSENTIAL HYPERTENSION [None]
  - GALLBLADDER DISORDER [None]
  - GASTROINTESTINAL ULCER HAEMORRHAGE [None]
  - HYPERCHOLESTEROLAEMIA [None]
  - MYOCARDIAL ISCHAEMIA [None]
  - PERIPHERAL ARTERIAL OCCLUSIVE DISEASE [None]
  - ULCER HAEMORRHAGE [None]
